FAERS Safety Report 26011007 (Version 3)
Quarter: 2025Q4

REPORT INFORMATION
  Report Type: Report from Study
  Country: IN (occurrence: IN)
  Receive Date: 20251107
  Receipt Date: 20251212
  Transmission Date: 20260117
  Serious: Yes (Other)
  Sender: ROCHE
  Company Number: IN-ROCHE-10000349071

PATIENT
  Age: 51 Year
  Sex: Male
  Weight: 63 kg

DRUGS (3)
  1. TECENTRIQ [Suspect]
     Active Substance: ATEZOLIZUMAB
     Indication: Hepatocellular carcinoma
     Dosage: 5TH INFUSION WAS ON 03-JUL-2025, 6TH INFUSION WAS ON 25-JUL-2025
     Route: 042
     Dates: start: 20250408
  2. TECENTRIQ [Suspect]
     Active Substance: ATEZOLIZUMAB
     Dosage: 5TH INFUSION WAS ON 03-JUL-2025, 6TH INFUSION WAS ON 25-JUL-2025
     Route: 042
  3. BEVACIZUMAB [Concomitant]
     Active Substance: BEVACIZUMAB

REACTIONS (2)
  - Off label use [Unknown]
  - Rectal haemorrhage [Unknown]

NARRATIVE: CASE EVENT DATE: 20250725
